FAERS Safety Report 9430586 (Version 1)
Quarter: 2013Q3

REPORT INFORMATION
  Report Type: Spontaneous
  Country: GB (occurrence: None)
  Receive Date: 20130726
  Receipt Date: 20130726
  Transmission Date: 20140515
  Serious: Yes (Hospitalization)
  Sender: FDA-Public Use
  Company Number: 2013AP006823

PATIENT
  Age: 71 Year
  Sex: Female

DRUGS (9)
  1. OMEPRAZOLE (OMEPRAZOLE) [Suspect]
  2. ASPIRIN (ACETYLSALICYLIC ACID) [Concomitant]
  3. BISOPROLOL (BISOPROLOL) [Concomitant]
  4. FLURAZEPAM (FLURAZEPAM) [Concomitant]
  5. DOSULEPIN (DOSULEPIN) [Concomitant]
  6. DOXAZOSIN (DOXAZOSIN) [Concomitant]
  7. RAMIPRIL (RAMIPRIL) [Concomitant]
  8. PRAVASTATIN (PRAVASTATIN) [Concomitant]
  9. ROPINIROLE (ROPINIROLE) [Concomitant]

REACTIONS (2)
  - Hypocalcaemia [None]
  - Hypomagnesaemia [None]
